FAERS Safety Report 4725916-8 (Version None)
Quarter: 2005Q3

REPORT INFORMATION
  Report Type: 
  Country: None (occurrence: None)
  Receive Date: 20050727
  Receipt Date: 20050714
  Transmission Date: 20060218
  Serious: Yes (Other)
  Sender: FDA-Public Use
  Company Number: DE-JNJFOC-20050502536

PATIENT
  Sex: Male
  Weight: 65 kg

DRUGS (2)
  1. REMINYL [Suspect]
     Indication: DEMENTIA
     Route: 048
     Dates: start: 20030220, end: 20050504
  2. REMINYL [Suspect]
     Indication: DRUG USE FOR UNKNOWN INDICATION
     Route: 048

REACTIONS (1)
  - LIVER FUNCTION TEST ABNORMAL [None]
